FAERS Safety Report 15707630 (Version 1)
Quarter: 2018Q4

REPORT INFORMATION
  Report Type: Spontaneous
  Country: ES (occurrence: ES)
  Receive Date: 20181211
  Receipt Date: 20181211
  Transmission Date: 20190205
  Serious: Yes (Hospitalization, Other)
  Sender: FDA-Public Use
  Company Number: ES-ACCORD-094867

PATIENT
  Age: 68 Year
  Sex: Female

DRUGS (1)
  1. METHOTREXATE. [Suspect]
     Active Substance: METHOTREXATE
     Indication: RHEUMATOID ARTHRITIS

REACTIONS (6)
  - C-reactive protein increased [Unknown]
  - Leukocytosis [Unknown]
  - Wound haemorrhage [Unknown]
  - Nervous system disorder [Unknown]
  - Postoperative wound infection [Unknown]
  - Wound dehiscence [Unknown]
